FAERS Safety Report 4718784-1 (Version None)
Quarter: 2005Q3

REPORT INFORMATION
  Report Type: 
  Country: None (occurrence: None)
  Receive Date: 20050719
  Receipt Date: 20050509
  Transmission Date: 20060218
  Serious: Yes (Hospitalization, Other)
  Sender: FDA-Public Use
  Company Number: 2005001649

PATIENT
  Sex: Female
  Weight: 49.8957 kg

DRUGS (2)
  1. CELEBREX [Suspect]
     Indication: ARTHRITIS
     Dates: start: 20040101
  2. ROFECOXIB [Suspect]
     Indication: ARTHRITIS

REACTIONS (1)
  - RECTAL HAEMORRHAGE [None]
